FAERS Safety Report 12744074 (Version 1)
Quarter: 2016Q3

REPORT INFORMATION
  Report Type: Spontaneous
  Country: US (occurrence: US)
  Receive Date: 20160914
  Receipt Date: 20160914
  Transmission Date: 20161109
  Serious: Yes (Other)
  Sender: FDA-Public Use
  Company Number: US-JAZZ-2016-US-016856

PATIENT
  Age: 66 Year
  Sex: Female

DRUGS (3)
  1. MORPHINE SULF [Suspect]
     Active Substance: MORPHINE SULFATE
     Dosage: 0.137 MG, QH
     Route: 037
  2. PRIALT [Suspect]
     Active Substance: ZICONOTIDE ACETATE
     Dosage: 0.006 ?G, QH
     Route: 037
  3. CLONIDINE. [Suspect]
     Active Substance: CLONIDINE
     Dosage: 6.221 ?G, QH
     Route: 037

REACTIONS (4)
  - Device issue [Unknown]
  - Withdrawal syndrome [Unknown]
  - Myocardial infarction [Unknown]
  - Somnolence [Unknown]

NARRATIVE: CASE EVENT DATE: 20160829
